FAERS Safety Report 9223440 (Version 4)
Quarter: 2013Q3

REPORT INFORMATION
  Report Type: Spontaneous
  Country: FR (occurrence: FR)
  Receive Date: 20130410
  Receipt Date: 20130903
  Transmission Date: 20140515
  Serious: Yes (Hospitalization, Other)
  Sender: FDA-Public Use
  Company Number: FR-ASTRAZENECA-2013SE22588

PATIENT
  Age: 19703 Day
  Sex: Male
  Weight: 100 kg

DRUGS (18)
  1. XEROQUEL [Suspect]
     Indication: HYPOMANIA
     Route: 048
     Dates: start: 20121223, end: 201212
  2. XEROQUEL [Suspect]
     Indication: BIPOLAR DISORDER
     Route: 048
     Dates: start: 20121223, end: 201212
  3. XEROQUEL [Suspect]
     Indication: HYPOMANIA
     Route: 048
     Dates: start: 201212, end: 20130116
  4. XEROQUEL [Suspect]
     Indication: BIPOLAR DISORDER
     Route: 048
     Dates: start: 201212, end: 20130116
  5. XEROQUEL [Suspect]
     Indication: HYPOMANIA
     Route: 048
     Dates: start: 20130117, end: 20130121
  6. XEROQUEL [Suspect]
     Indication: BIPOLAR DISORDER
     Route: 048
     Dates: start: 20130117, end: 20130121
  7. XEROQUEL [Suspect]
     Indication: HYPOMANIA
     Route: 048
     Dates: start: 20130122, end: 20130131
  8. XEROQUEL [Suspect]
     Indication: BIPOLAR DISORDER
     Route: 048
     Dates: start: 20130122, end: 20130131
  9. XEROQUEL [Suspect]
     Indication: HYPOMANIA
     Route: 048
     Dates: start: 20130201, end: 20130304
  10. XEROQUEL [Suspect]
     Indication: BIPOLAR DISORDER
     Route: 048
     Dates: start: 20130201, end: 20130304
  11. ZYPREXA [Suspect]
     Indication: HYPOMANIA
     Route: 065
  12. ZYPREXA [Suspect]
     Indication: HYPOMANIA
     Route: 065
  13. TERALITHE [Concomitant]
     Indication: HYPOMANIA
     Route: 048
  14. LAROXYL [Concomitant]
  15. TRANXENE [Concomitant]
  16. VICTAN [Concomitant]
  17. STAGID [Concomitant]
     Indication: TYPE 2 DIABETES MELLITUS
  18. GYNERGENE CAFEINE [Concomitant]
     Indication: MIGRAINE

REACTIONS (2)
  - Pancreatitis acute [Recovered/Resolved]
  - Agitation [Recovered/Resolved]
